FAERS Safety Report 23319749 (Version 1)
Quarter: 2023Q4

REPORT INFORMATION
  Report Type: Spontaneous
  Country: US (occurrence: US)
  Receive Date: 20231220
  Receipt Date: 20231220
  Transmission Date: 20240110
  Serious: Yes (Hospitalization, Other)
  Sender: FDA-Public Use
  Company Number: US-DRL-USA-LIT/USA/23/0032278

PATIENT
  Age: 65 Year
  Sex: Male

DRUGS (5)
  1. ZOLEDRONIC ACID [Suspect]
     Active Substance: ZOLEDRONIC ACID
     Indication: Hypercalcaemia
  2. SUNITINIB [Suspect]
     Active Substance: SUNITINIB
     Indication: Carcinoid tumour
  3. PAMIDRONATE [Concomitant]
     Active Substance: PAMIDRONATE DISODIUM
     Indication: Hypercalcaemia
  4. OCTREOTIDE [Concomitant]
     Active Substance: OCTREOTIDE
     Indication: Hypercalcaemia
  5. DENOSUMAB [Concomitant]
     Active Substance: DENOSUMAB
     Indication: Hypercalcaemia

REACTIONS (2)
  - Pancreatitis [Unknown]
  - Drug ineffective [Unknown]
